FAERS Safety Report 23310764 (Version 3)
Quarter: 2024Q4

REPORT INFORMATION
  Report Type: Report from Study
  Country: US (occurrence: US)
  Receive Date: 20231218
  Receipt Date: 20241010
  Transmission Date: 20250115
  Serious: Yes (Other)
  Sender: ABBVIE
  Company Number: US-ABBVIE-5541680

PATIENT
  Sex: Female

DRUGS (5)
  1. RINVOQ [Suspect]
     Active Substance: UPADACITINIB
     Indication: Psoriatic arthropathy
     Dosage: STRENGTH: 15 MILLIGRAMS
     Route: 048
     Dates: start: 20230401
  2. RINVOQ [Suspect]
     Active Substance: UPADACITINIB
     Indication: Psoriatic arthropathy
     Dosage: FIRST ADMIN DATE: 2023?STRENGTH: 15 MILLIGRAMS
     Route: 048
  3. RINVOQ [Suspect]
     Active Substance: UPADACITINIB
     Indication: Psoriatic arthropathy
     Dosage: STRENGTH 15MG
     Route: 048
  4. METHOTREXATE [Concomitant]
     Active Substance: METHOTREXATE
     Indication: Product used for unknown indication
  5. OTEZLA [Concomitant]
     Active Substance: APREMILAST
     Indication: Product used for unknown indication

REACTIONS (16)
  - Systemic lupus erythematosus [Not Recovered/Not Resolved]
  - Viral infection [Not Recovered/Not Resolved]
  - Cough [Recovered/Resolved]
  - Burning sensation [Not Recovered/Not Resolved]
  - Swelling [Unknown]
  - Back pain [Unknown]
  - Myalgia [Recovered/Resolved]
  - Pyrexia [Recovered/Resolved]
  - Oropharyngeal pain [Not Recovered/Not Resolved]
  - Pain [Not Recovered/Not Resolved]
  - Nasal congestion [Recovered/Resolved]
  - Musculoskeletal stiffness [Unknown]
  - Myalgia [Not Recovered/Not Resolved]
  - Pyrexia [Recovered/Resolved]
  - Arthralgia [Unknown]
  - Cough [Recovered/Resolved]

NARRATIVE: CASE EVENT DATE: 20230101
